FAERS Safety Report 18172231 (Version 1)
Quarter: 2020Q3

REPORT INFORMATION
  Report Type: Spontaneous
  Country: CA (occurrence: CA)
  Receive Date: 20200820
  Receipt Date: 20200820
  Transmission Date: 20201103
  Serious: Yes (Other)
  Sender: FDA-Public Use
  Company Number: CA-ROCHE-2659490

PATIENT
  Age: 58 Year
  Sex: Male
  Weight: 98 kg

DRUGS (21)
  1. IRINOTECAN HYDROCHLORIDE. [Suspect]
     Active Substance: IRINOTECAN HYDROCHLORIDE
     Indication: COLON CANCER METASTATIC
     Dosage: SOLUTION INTRAVENOUS
     Route: 042
  2. LANSOPRAZOLE. [Concomitant]
     Active Substance: LANSOPRAZOLE
  3. FUROSEMIDE. [Concomitant]
     Active Substance: FUROSEMIDE
  4. INSULIN LISPRO [Concomitant]
     Active Substance: INSULIN LISPRO
  5. ATROPINE. [Concomitant]
     Active Substance: ATROPINE
  6. BISOPROLOL [Concomitant]
     Active Substance: BISOPROLOL
  7. DEXAMETHASONE. [Concomitant]
     Active Substance: DEXAMETHASONE
  8. DIPHENHYDRAMINE. [Concomitant]
     Active Substance: DIPHENHYDRAMINE
  9. BEVACIZUMAB. [Suspect]
     Active Substance: BEVACIZUMAB
     Indication: COLON CANCER METASTATIC
     Route: 042
  10. 5?FU [FLUOROURACIL] [Concomitant]
     Active Substance: FLUOROURACIL
  11. CLOPIDOGREL [Concomitant]
     Active Substance: CLOPIDOGREL BISULFATE
  12. LOPERAMIDE [Concomitant]
     Active Substance: LOPERAMIDE
  13. ROSUVASTATIN. [Concomitant]
     Active Substance: ROSUVASTATIN
  14. EPLERENONE. [Concomitant]
     Active Substance: EPLERENONE
  15. METFORMIN [Concomitant]
     Active Substance: METFORMIN HYDROCHLORIDE
     Route: 048
  16. PROCHLORPERAZINE. [Concomitant]
     Active Substance: PROCHLORPERAZINE
  17. VENLAFAXINE [Concomitant]
     Active Substance: VENLAFAXINE HYDROCHLORIDE
  18. FERROUS GLUCONATE [Concomitant]
     Active Substance: FERROUS GLUCONATE
  19. APIXABAN [Concomitant]
     Active Substance: APIXABAN
  20. EMPAGLIFLOZIN;LINAGLIPTIN [Concomitant]
     Active Substance: EMPAGLIFLOZIN\LINAGLIPTIN
  21. ONDANSETRON [Concomitant]
     Active Substance: ONDANSETRON

REACTIONS (6)
  - Malaise [Unknown]
  - Atrial fibrillation [Unknown]
  - Diarrhoea [Unknown]
  - Product dose omission issue [Unknown]
  - Dehydration [Unknown]
  - Pyrexia [Unknown]
